FAERS Safety Report 7677833-1 (Version None)
Quarter: 2011Q3

REPORT INFORMATION
  Report Type: 
  Country: None (occurrence: None)
  Receive Date: 20110811
  Receipt Date: 20110803
  Transmission Date: 20111222
  Serious: Yes (Other)
  Sender: FDA-Public Use
  Company Number: US-JNJFOC-2003005314

PATIENT
  Sex: Female
  Weight: 59 kg

DRUGS (9)
  1. PREDNISONE [Suspect]
     Indication: ANAPHYLACTIC REACTION
     Dates: start: 20030201
  2. ALL OTHER THERAPEUTIC PRODUCTS [Concomitant]
  3. ZOLOFT [Suspect]
     Indication: DEPRESSION
     Dosage: FREQUENCY TEXT: DAILY DAILY DOSE QTY: 25 MG
     Route: 048
  4. DIPHENHYDRAMINE HYDROCHLORIDE [Suspect]
     Indication: URTICARIA
     Route: 048
     Dates: start: 20030131
  5. TOCOPHEROL CONCENTRATE CAP [Concomitant]
     Route: 048
  6. BENADRYL [Suspect]
     Indication: ANAPHYLACTIC REACTION
     Route: 042
     Dates: start: 20030202
  7. TRAZODONE HCL [Concomitant]
     Route: 048
  8. MULTI-VITAMINS [Concomitant]
     Route: 048
  9. ATARAX [Suspect]
     Indication: ANAPHYLACTIC REACTION
     Dates: start: 20030201

REACTIONS (3)
  - URTICARIA [None]
  - MYALGIA [None]
  - ANAPHYLACTIC REACTION [None]
